FAERS Safety Report 16006969 (Version 1)
Quarter: 2019Q1

REPORT INFORMATION
  Report Type: Spontaneous
  Country: GB (occurrence: GB)
  Receive Date: 20190226
  Receipt Date: 20190226
  Transmission Date: 20190418
  Serious: Yes (Hospitalization)
  Sender: FDA-Public Use
  Company Number: GB-ASTRAZENECA-2019SE28510

PATIENT
  Age: 33 Year

DRUGS (15)
  1. PRIADEL [Concomitant]
     Active Substance: LITHIUM
  2. EPIPEN [Concomitant]
     Active Substance: EPINEPHRINE
     Dosage: 300MICROGRAMS/0.3ML
  3. ZOLPIDEM [Concomitant]
     Active Substance: ZOLPIDEM\ZOLPIDEM TARTRATE
     Dosage: AT NIGHT, 10 MG DAILY
  4. FERROUS FUMARATE [Concomitant]
     Active Substance: FERROUS FUMARATE
  5. VENLAFAXINE [Suspect]
     Active Substance: VENLAFAXINE HYDROCHLORIDE
     Route: 065
  6. OMEPRAZOLE. [Concomitant]
     Active Substance: OMEPRAZOLE
  7. LORAZEPAM. [Concomitant]
     Active Substance: LORAZEPAM
  8. THIAMINE. [Concomitant]
     Active Substance: THIAMINE
  9. LACTULOSE. [Concomitant]
     Active Substance: LACTULOSE
     Dosage: 3.1-3.7G/5ML THREE 5ML SPOONFULS TO BE TAKEN TWICE A DAY
  10. MIRTAZAPINE. [Concomitant]
     Active Substance: MIRTAZAPINE
     Dosage: AT NIGHT, 15 MG, DAILY
  11. PROCYCLIDINE [Concomitant]
     Active Substance: PROCYCLIDINE
  12. METFORMIN [Concomitant]
     Active Substance: METFORMIN HYDROCHLORIDE
  13. HYOSCINE BUTYLBROMIDE [Concomitant]
     Active Substance: BUTYLSCOPOLAMINE
  14. QUETIAPINE. [Suspect]
     Active Substance: QUETIAPINE
     Dosage: 650 MG, DAILY (300MG TABLET 1 EACH NIGHT, 50MG TABLET: 1 IN THE MORNING, 3 AT LUNCH TIME, 3 AT NI...
     Route: 048
  15. PROMETHAZINE HYDROCHLORIDE. [Concomitant]
     Active Substance: PROMETHAZINE HYDROCHLORIDE

REACTIONS (1)
  - Pulmonary embolism [Unknown]
